FAERS Safety Report 7679324-0 (Version None)
Quarter: 2011Q3

REPORT INFORMATION
  Report Type: 
  Country: None (occurrence: None)
  Receive Date: 20110808
  Receipt Date: 20110726
  Transmission Date: 20111222
  Serious: Yes (Other)
  Sender: FDA-Public Use
  Company Number: B0736842A

PATIENT
  Age: 48 Year
  Sex: Female

DRUGS (3)
  1. FLUTICASONE PROPIONATE [Suspect]
     Indication: RHINITIS ALLERGIC
  2. ANTIHISTAMINE [Concomitant]
  3. CORTICOSTEROID [Concomitant]

REACTIONS (2)
  - CHORIORETINOPATHY [None]
  - VISION BLURRED [None]
